FAERS Safety Report 10266674 (Version 1)
Quarter: 2014Q2

REPORT INFORMATION
  Report Type: Other
  Country: US (occurrence: US)
  Receive Date: 20140629
  Receipt Date: 20140629
  Transmission Date: 20141212
  Serious: Yes (Other)
  Sender: FDA-Public Use
  Company Number: US-BRISTOL-MYERS SQUIBB COMPANY-21117452

PATIENT
  Sex: Female

DRUGS (2)
  1. ATAZANAVIR [Suspect]
     Indication: HIV INFECTION
     Route: 048
  2. RALTEGRAVIR [Suspect]
     Indication: HIV INFECTION
     Route: 048

REACTIONS (2)
  - Abortion induced [Unknown]
  - Exposure during pregnancy [Recovered/Resolved]
